FAERS Safety Report 5646445-3 (Version None)
Quarter: 2008Q1

REPORT INFORMATION
  Report Type: 
  Country: None (occurrence: None)
  Receive Date: 20080303
  Receipt Date: 20080228
  Transmission Date: 20080703
  Serious: Yes (Other)
  Sender: FDA-Public Use
  Company Number: US-BRISTOL-MYERS SQUIBB COMPANY-14092399

PATIENT
  Age: 79 Year
  Sex: Male

DRUGS (4)
  1. GATIFLOXACIN [Suspect]
     Indication: POST PROCEDURAL INFECTION
  2. GLIBENCLAMIDE [Suspect]
     Indication: TYPE 2 DIABETES MELLITUS
  3. FELODIPINE [Concomitant]
  4. FUROSEMIDE [Concomitant]

REACTIONS (1)
  - HYPOGLYCAEMIA [None]
